FAERS Safety Report 23344251 (Version 1)
Quarter: 2023Q4

REPORT INFORMATION
  Report Type: Spontaneous
  Country: US (occurrence: US)
  Receive Date: 20231228
  Receipt Date: 20231228
  Transmission Date: 20240109
  Serious: Yes (Hospitalization, Other)
  Sender: FDA-Public Use
  Company Number: US-ABBVIE-5558621

PATIENT
  Age: 78 Year
  Sex: Male

DRUGS (4)
  1. VENETOCLAX [Suspect]
     Active Substance: VENETOCLAX
     Indication: Acute myeloid leukaemia
     Dosage: 400 MG/DAY ON DAYS 1 THROUGH 28
     Route: 048
  2. VENETOCLAX [Suspect]
     Active Substance: VENETOCLAX
     Indication: Acute myeloid leukaemia
     Dosage: RESUMED THERAPY
     Route: 048
  3. AZACITIDINE [Suspect]
     Active Substance: AZACITIDINE
     Indication: Acute myeloid leukaemia
     Dosage: 75 MG /M 2 /DAY ON DAYS 1 THROUGH 7 EVERY 28 DAYS
     Route: 065
  4. AZACITIDINE [Suspect]
     Active Substance: AZACITIDINE
     Indication: Acute myeloid leukaemia
     Dosage: RESUMED THERAPY
     Route: 065

REACTIONS (5)
  - Acute myeloid leukaemia recurrent [Unknown]
  - Bacteraemia [Unknown]
  - Minimal residual disease [Unknown]
  - Cytopenia [Unknown]
  - Neutropenia [Unknown]
